FAERS Safety Report 24702598 (Version 1)
Quarter: 2024Q4

REPORT INFORMATION
  Report Type: Spontaneous
  Country: AT (occurrence: AT)
  Receive Date: 20241205
  Receipt Date: 20241205
  Transmission Date: 20250114
  Serious: Yes (Congenital Anomaly)
  Sender: INSUD PHARMA
  Company Number: None

PATIENT
  Age: 9 Week
  Sex: Male
  Weight: 7 kg

DRUGS (4)
  1. PROGESTERONE [Suspect]
     Active Substance: PROGESTERONE
     Dosage: 200 MILLIGRAM
     Dates: start: 2023
  2. CITALOPRAM [Suspect]
     Active Substance: CITALOPRAM
  3. MIRTAZAPINE [Suspect]
     Active Substance: MIRTAZAPINE
     Dosage: 3.75 MILLIGRAM
     Dates: start: 2022
  4. TRETINOIN [Suspect]
     Active Substance: TRETINOIN
     Dates: start: 202311

REACTIONS (2)
  - Epispadias [Recovered/Resolved with Sequelae]
  - Foetal exposure timing unspecified [Recovered/Resolved with Sequelae]

NARRATIVE: CASE EVENT DATE: 20240101
